FAERS Safety Report 22975891 (Version 2)
Quarter: 2025Q2

REPORT INFORMATION
  Report Type: Report from Study
  Country: US (occurrence: US)
  Receive Date: 20230925
  Receipt Date: 20250605
  Transmission Date: 20250717
  Serious: Yes (Other)
  Sender: ABBVIE
  Company Number: US-ABBVIE-5416860

PATIENT
  Age: 52 Year
  Sex: Female

DRUGS (1)
  1. SKYRIZI [Suspect]
     Active Substance: RISANKIZUMAB-RZAA
     Indication: Crohn^s disease
     Route: 058

REACTIONS (2)
  - Breast cancer stage IV [Not Recovered/Not Resolved]
  - Vocal cord paralysis [Not Recovered/Not Resolved]

NARRATIVE: CASE EVENT DATE: 20190101
